FAERS Safety Report 10170774 (Version 1)
Quarter: 2014Q2

REPORT INFORMATION
  Report Type: Spontaneous
  Country: US (occurrence: US)
  Receive Date: 20140514
  Receipt Date: 20140514
  Transmission Date: 20141212
  Serious: No
  Sender: FDA-Public Use
  Company Number: US-B.I. PHARMACEUTICALS,INC./RIDGEFIELD-2014-BI-19551BP

PATIENT
  Sex: Female
  Weight: 62 kg

DRUGS (11)
  1. SPIRIVA [Suspect]
     Indication: CHRONIC OBSTRUCTIVE PULMONARY DISEASE
     Dosage: 1 PUF
     Route: 065
  2. PROAIR [Concomitant]
     Dosage: FORMULATION: AEROSOL INHALER; HFA 90 MCG/ACTUATION
     Route: 065
  3. SMZ-TMP DS [Concomitant]
     Route: 065
  4. OXYBUTYNIN [Concomitant]
     Route: 065
  5. VITAMIN D [Concomitant]
     Route: 065
  6. SIMVASTATIN [Concomitant]
     Route: 065
  7. BENAZEPRIL [Concomitant]
     Route: 065
  8. ADVAIR [Concomitant]
     Dosage: 2 PUF
     Route: 065
  9. ALBUTEROL SULFATE [Concomitant]
     Dosage: FORMULATION: NEB SOLUTION; DOSE PER APPLICATION: 1 VIAL; 2.5 MG/3 ML (0.083 %) NEB SOLUTION
     Route: 065
  10. PERFOROMIST [Concomitant]
     Dosage: FORMULATION: NEB SOLUTION, DOSE PER APPLICATION: 1 VIAL; 20 MCG/2 ML NEB SOLUTION
     Route: 065
  11. HOME O2 [Concomitant]
     Dosage: DOSE PER APPLICAITON: 2LPM
     Route: 065

REACTIONS (4)
  - Sputum discoloured [Unknown]
  - Wheezing [Unknown]
  - Dyspnoea [Unknown]
  - Cough [Unknown]
